FAERS Safety Report 6046879-1 (Version None)
Quarter: 2009Q1

REPORT INFORMATION
  Report Type: 
  Country: None (occurrence: None)
  Receive Date: 20090122
  Receipt Date: 20090116
  Transmission Date: 20090719
  Serious: Yes (Other)
  Sender: FDA-Public Use
  Company Number: B0541913A

PATIENT
  Age: 53 Year
  Sex: Female

DRUGS (1)
  1. MALARONE [Suspect]
     Indication: MALARIA PROPHYLAXIS
     Route: 048
     Dates: start: 20080905, end: 20080922

REACTIONS (5)
  - BLEEDING TIME PROLONGED [None]
  - CONTUSION [None]
  - EPISTAXIS [None]
  - HAEMATOMA [None]
  - HAEMORRHAGIC DIATHESIS [None]
